FAERS Safety Report 23843648 (Version 1)
Quarter: 2024Q2

REPORT INFORMATION
  Report Type: Report from Study
  Country: US (occurrence: US)
  Receive Date: 20240510
  Receipt Date: 20240510
  Transmission Date: 20240716
  Serious: Yes (Other)
  Sender: FDA-Public Use
  Company Number: US-AKCEA THERAPEUTICS, INC.-2024IS004419

PATIENT

DRUGS (1)
  1. TEGSEDI [Suspect]
     Active Substance: INOTERSEN SODIUM
     Indication: Hereditary neuropathic amyloidosis
     Dosage: 284 MILLIGRAM
     Route: 065

REACTIONS (6)
  - Central nervous system haemorrhage [Unknown]
  - Road traffic accident [Unknown]
  - Head injury [Unknown]
  - Memory impairment [Unknown]
  - Cough [Unknown]
  - Product monitoring error [Unknown]
